FAERS Safety Report 13766516 (Version 2)
Quarter: 2017Q3

REPORT INFORMATION
  Report Type: Spontaneous
  Country: JP (occurrence: JP)
  Receive Date: 20170719
  Receipt Date: 20170809
  Transmission Date: 20171127
  Serious: Yes (Life-Threatening, Hospitalization)
  Sender: FDA-Public Use
  Company Number: JP-TEVA-201707_00000345

PATIENT
  Age: 77 Year
  Sex: Male
  Weight: 68 kg

DRUGS (9)
  1. FEBURIC [Concomitant]
     Active Substance: FEBUXOSTAT
     Indication: HYPERURICAEMIA
     Dosage: 60 MILLIGRAM DAILY;
     Route: 048
     Dates: start: 20170405, end: 20170417
  2. BAKTAR [Concomitant]
     Active Substance: SULFAMETHOXAZOLE\TRIMETHOPRIM
     Indication: ANTIFUNGAL PROPHYLAXIS
     Route: 048
     Dates: start: 20170407
  3. PREDNISOLONE TABLETS 5MG. [Suspect]
     Active Substance: PREDNISOLONE
     Indication: ACUTE LYMPHOCYTIC LEUKAEMIA
     Route: 048
     Dates: start: 20170405, end: 20170428
  4. ONCOVIN [Concomitant]
     Active Substance: VINCRISTINE SULFATE
     Indication: ACUTE LYMPHOCYTIC LEUKAEMIA
     Route: 042
     Dates: start: 20170407, end: 20170421
  5. DENOSINE [Concomitant]
     Active Substance: GANCICLOVIR
     Indication: PNEUMONIA CYTOMEGALOVIRAL
     Dosage: 600 MILLIGRAM DAILY;
     Route: 041
     Dates: start: 20170427, end: 20170428
  6. L-ASPARAGINASE [Suspect]
     Active Substance: ASPARAGINASE
     Indication: ACUTE LYMPHOCYTIC LEUKAEMIA
     Route: 041
     Dates: start: 20170415, end: 20170419
  7. L-ASPARAGINASE [Suspect]
     Active Substance: ASPARAGINASE
     Route: 041
     Dates: start: 20170422, end: 20170422
  8. PREDNISOLONE TABLETS 5MG. [Suspect]
     Active Substance: PREDNISOLONE
     Route: 048
     Dates: start: 20170428, end: 20170509
  9. FILGRASTIM BS[BIOSIMILAR 2] [Concomitant]
     Indication: NEUTROPHIL COUNT DECREASED
     Route: 058
     Dates: start: 20170422, end: 20170501

REACTIONS (1)
  - Liver disorder [Recovered/Resolved]

NARRATIVE: CASE EVENT DATE: 20170421
